FAERS Safety Report 6975664-9 (Version None)
Quarter: 2010Q3

REPORT INFORMATION
  Report Type: 
  Country: None (occurrence: None)
  Receive Date: 20100910
  Receipt Date: 20100827
  Transmission Date: 20110219
  Serious: Yes (Hospitalization, Disabling, Other)
  Sender: FDA-Public Use
  Company Number: IL-RANBAXY-2010RR-37867

PATIENT
  Age: 28 Year
  Sex: Male

DRUGS (1)
  1. ISOTRETINOIN [Suspect]
     Indication: ACNE
     Dosage: 30 MG, UNK

REACTIONS (4)
  - DISABILITY [None]
  - DYSSTASIA [None]
  - GAIT DISTURBANCE [None]
  - SACROILIITIS [None]
